FAERS Safety Report 8837464 (Version 1)
Quarter: 2012Q4

REPORT INFORMATION
  Report Type: 
  Country: US (occurrence: US)
  Receive Date: 20121012
  Receipt Date: 20121012
  Transmission Date: 20130627
  Serious: Yes (Other)
  Sender: FDA-Public Use
  Company Number: US-JNJFOC-20121003516

PATIENT
  Age: 12 Year
  Sex: Female
  Weight: 47.63 kg

DRUGS (3)
  1. EXTRA STRENGTH TYLENOL RAPID RELEASE [Suspect]
     Indication: SLEEP DISORDER THERAPY
     Dosage: 1 gelcap once at night for 3 nights every other week
     Route: 048
     Dates: start: 2011, end: 20120929
  2. BENADRYL [Suspect]
     Indication: SLEEP DISORDER THERAPY
     Dosage: one tablet every night for 3 nights every other week
     Route: 048
     Dates: start: 2011, end: 20120929
  3. ALLERTEC [Concomitant]
     Indication: MULTIPLE ALLERGIES
     Route: 065

REACTIONS (2)
  - Drug dependence [Not Recovered/Not Resolved]
  - Off label use [Unknown]
